FAERS Safety Report 9186947 (Version 1)
Quarter: 2013Q1

REPORT INFORMATION
  Report Type: Spontaneous
  Country: NL (occurrence: NL)
  Receive Date: 20130325
  Receipt Date: 20130325
  Transmission Date: 20140127
  Serious: Yes (Other)
  Sender: FDA-Public Use
  Company Number: NL-TEVA-392160ISR

PATIENT
  Sex: Female

DRUGS (2)
  1. TAMOXIFEN [Suspect]
     Dosage: 20 MILLIGRAM DAILY;
     Route: 048
     Dates: start: 201202
  2. CITALOPRAM [Suspect]

REACTIONS (3)
  - Polyneuropathy [Unknown]
  - Headache [Unknown]
  - Diplopia [Unknown]
